FAERS Safety Report 9909007 (Version 2)
Quarter: 2014Q1

REPORT INFORMATION
  Report Type: Spontaneous
  Country: DE (occurrence: None)
  Receive Date: 20140212
  Receipt Date: 20140314
  Transmission Date: 20141002
  Serious: Yes (Death, Other)
  Sender: FDA-Public Use
  Company Number: 1402-0275

PATIENT
  Sex: 0

DRUGS (1)
  1. EYLEA  (AFLIBERCEPT) (AFLIBERCEPT) [Suspect]

REACTIONS (1)
  - Cerebrovascular accident [None]
